FAERS Safety Report 4280512-4 (Version None)
Quarter: 2004Q1

REPORT INFORMATION
  Report Type: 
  Country: None (occurrence: None)
  Receive Date: 20040127
  Receipt Date: 20040114
  Transmission Date: 20041129
  Serious: Yes (Other)
  Sender: FDA-Public Use
  Company Number: A-CH2003-03193

PATIENT
  Age: 34 Year
  Sex: Female
  Weight: 69 kg

DRUGS (2)
  1. BOSENTAN (BOSENTAN TABLET 125 MG) TABLET [Suspect]
     Indication: DRUG INTERACTION
     Dosage: 125 MG, BID, ORAL
     Route: 048
     Dates: start: 20030725, end: 20030731
  2. ORTHO-NOVUM 1/35 (NORETHISTERONE, MESTRANOL) [Suspect]
     Indication: DRUG INTERACTION
     Dosage: 1 MG, OD, ORAL
     Route: 048
     Dates: start: 20030731, end: 20030731

REACTIONS (1)
  - PREGNANCY [None]
